FAERS Safety Report 15694081 (Version 1)
Quarter: 2018Q4

REPORT INFORMATION
  Report Type: Spontaneous
  Country: US (occurrence: US)
  Receive Date: 20181206
  Receipt Date: 20181206
  Transmission Date: 20190205
  Serious: Yes (Other)
  Sender: FDA-Public Use
  Company Number: US-ENDO PHARMACEUTICALS INC-2017-011709

PATIENT
  Age: 29 Year
  Sex: Male
  Weight: 83.9 kg

DRUGS (1)
  1. XIAFLEX [Suspect]
     Active Substance: COLLAGENASE CLOSTRIDIUM HISTOLYTICUM
     Indication: PEYRONIE^S DISEASE
     Dosage: 1ST INJECTION OF 1ST CYCLE
     Route: 026
     Dates: start: 20171221

REACTIONS (7)
  - Injection site bruising [Not Recovered/Not Resolved]
  - Penile swelling [Not Recovered/Not Resolved]
  - Ecchymosis [Not Recovered/Not Resolved]
  - Injection site swelling [Not Recovered/Not Resolved]
  - Injection site haemorrhage [Not Recovered/Not Resolved]
  - Injection site pain [Not Recovered/Not Resolved]
  - Penile blister [Not Recovered/Not Resolved]

NARRATIVE: CASE EVENT DATE: 20171221
